FAERS Safety Report 7639086-X (Version None)
Quarter: 2011Q3

REPORT INFORMATION
  Report Type: 
  Country: None (occurrence: None)
  Receive Date: 20110727
  Receipt Date: 20110713
  Transmission Date: 20111222
  Serious: Yes (Hospitalization, Other)
  Sender: FDA-Public Use
  Company Number: PHHY2011US51340

PATIENT
  Sex: Female

DRUGS (22)
  1. PREMARIN [Concomitant]
     Dosage: UNK
     Dates: start: 20110509
  2. AFINITOR [Suspect]
     Indication: NEUROENDOCRINE CARCINOMA
     Dosage: 10 MG DAILY
     Route: 048
     Dates: start: 20110308, end: 20110604
  3. LASIX [Concomitant]
  4. CALCIUM ACETATE [Concomitant]
     Dosage: UNK
     Dates: start: 20110305
  5. TYLENOL-500 [Concomitant]
  6. ASPIRIN [Concomitant]
     Dosage: 325 MG, UNK
  7. GLIMEPIRIDE [Concomitant]
     Dosage: 2 MG, UNK
  8. DOCUSATE SODIUM [Concomitant]
     Dosage: 250 MG, UNK
     Dates: start: 20110305
  9. LANTUS [Concomitant]
  10. VICODIN [Concomitant]
     Dosage: 5MG-500MG
     Route: 048
     Dates: start: 20110305
  11. CITALOPRAM HYDROBROMIDE [Concomitant]
  12. OMEPRAZOLE [Concomitant]
     Dosage: 20 MG, UNK
     Dates: start: 20110530
  13. NORVASC [Concomitant]
     Dosage: 5 MG, UNK
  14. PREMARIN [Concomitant]
     Dosage: 1.25 MG, UNK
  15. EVEROLIMUS [Concomitant]
     Dosage: 10 MG, UNK
     Route: 048
  16. ACETAMINOPHEN [Concomitant]
     Dosage: 325 MG, UNK
     Dates: start: 20110305
  17. LEVOTHYROXINE SODIUM [Concomitant]
  18. METOPROLOL TARTRATE [Concomitant]
     Dosage: 50 MG, UNK
     Dates: start: 20110418
  19. LISINOPRIL [Concomitant]
     Dosage: 40 MG, UNK
     Dates: start: 20110501
  20. CHLORPHENIRAMINE MALEATE [Concomitant]
     Dosage: 4MG 1 TABLET
     Route: 048
     Dates: start: 20110305
  21. NIACIN [Concomitant]
     Dosage: UNK
     Dates: start: 20110305
  22. VITAMIN D [Concomitant]
     Dosage: UNK
     Dates: start: 20110305

REACTIONS (40)
  - PNEUMONIA [None]
  - DEPRESSION [None]
  - BILIARY DILATATION [None]
  - HYPOGLYCAEMIA [None]
  - BLOOD PRESSURE SYSTOLIC INCREASED [None]
  - DRUG INEFFECTIVE [None]
  - HEPATIC ATROPHY [None]
  - PANCREATIC DUCT DILATATION [None]
  - ATELECTASIS [None]
  - MALAISE [None]
  - EOSINOPHIL COUNT INCREASED [None]
  - DYSPNOEA [None]
  - ASTHENIA [None]
  - URINE OUTPUT DECREASED [None]
  - PANCREATIC MASS [None]
  - RENAL DISORDER [None]
  - PERSONALITY CHANGE [None]
  - DRY SKIN [None]
  - JOINT SWELLING [None]
  - OEDEMA PERIPHERAL [None]
  - METASTASES TO LIVER [None]
  - PORTAL VEIN THROMBOSIS [None]
  - LETHARGY [None]
  - PLEURAL EFFUSION [None]
  - COUGH [None]
  - LIP SWELLING [None]
  - DECREASED APPETITE [None]
  - BLOOD GLUCOSE DECREASED [None]
  - BLOOD PRESSURE DIASTOLIC DECREASED [None]
  - CHILLS [None]
  - ASCITES [None]
  - BLOOD ALBUMIN DECREASED [None]
  - EPISTAXIS [None]
  - PANCREATIC CALCIFICATION [None]
  - BLADDER DISORDER [None]
  - OEDEMA [None]
  - BASOPHIL COUNT INCREASED [None]
  - PAINFUL RESPIRATION [None]
  - MALIGNANT NEOPLASM OF ISLETS OF LANGERHANS [None]
  - WHITE BLOOD CELL COUNT DECREASED [None]
